FAERS Safety Report 16887285 (Version 2)
Quarter: 2019Q4

REPORT INFORMATION
  Report Type: Spontaneous
  Country: DE (occurrence: DE)
  Receive Date: 20191004
  Receipt Date: 20191121
  Transmission Date: 20200122
  Serious: Yes (Hospitalization)
  Sender: FDA-Public Use
  Company Number: DE-JNJFOC-20190939474

PATIENT
  Age: 79 Year
  Sex: Male
  Weight: 89 kg

DRUGS (3)
  1. RIVAROXABAN [Suspect]
     Active Substance: RIVAROXABAN
     Indication: ATRIAL FIBRILLATION
     Dosage: 20 MG QD
     Route: 048
  2. KEPPRA [Interacting]
     Active Substance: LEVETIRACETAM
     Indication: POST STROKE EPILEPSY
     Dosage: 500 MG, BID
     Route: 065
  3. GALANTAMIN [Concomitant]
     Active Substance: GALANTAMINE
     Dosage: 24 MG, QD

REACTIONS (3)
  - Drug interaction [Recovering/Resolving]
  - Monoplegia [Recovering/Resolving]
  - Ischaemic stroke [Recovering/Resolving]

NARRATIVE: CASE EVENT DATE: 20190808
